FAERS Safety Report 17244803 (Version 2)
Quarter: 2020Q1

REPORT INFORMATION
  Report Type: Report from Study
  Country: US (occurrence: US)
  Receive Date: 20200107
  Receipt Date: 20200207
  Transmission Date: 20200409
  Serious: Yes (Other)
  Sender: FDA-Public Use
  Company Number: US-BIOGEN-2020BI00824305

PATIENT
  Sex: Female

DRUGS (2)
  1. TECFIDERA [Suspect]
     Active Substance: DIMETHYL FUMARATE
     Route: 048
     Dates: start: 20191220
  2. TECFIDERA [Suspect]
     Active Substance: DIMETHYL FUMARATE
     Indication: MULTIPLE SCLEROSIS
     Route: 048
     Dates: start: 20191226

REACTIONS (8)
  - Ageusia [Unknown]
  - Sneezing [Unknown]
  - Pruritus [Unknown]
  - Dehydration [Unknown]
  - Constipation [Unknown]
  - Flushing [Unknown]
  - Cough [Unknown]
  - Diabetes mellitus [Unknown]
